FAERS Safety Report 24464352 (Version 1)
Quarter: 2024Q4

REPORT INFORMATION
  Report Type: Report from Study
  Country: US (occurrence: US)
  Receive Date: 20241018
  Receipt Date: 20241018
  Transmission Date: 20250115
  Serious: No
  Sender: ROCHE
  Company Number: US-ROCHE-3489190

PATIENT
  Age: 77 Year
  Sex: Female

DRUGS (8)
  1. XOLAIR [Suspect]
     Active Substance: OMALIZUMAB
     Indication: Urticaria
     Dosage: STRENGTH: 150MG/ML
     Route: 058
     Dates: start: 20230808
  2. XOLAIR [Suspect]
     Active Substance: OMALIZUMAB
     Indication: Idiopathic urticaria
  3. AMOXICILLIN [Concomitant]
     Active Substance: AMOXICILLIN
  4. ATORVASTATIN [Concomitant]
     Active Substance: ATORVASTATIN
  5. AZITHROMYCIN [Concomitant]
     Active Substance: AZITHROMYCIN
  6. CIPROFLOXACIN [Concomitant]
     Active Substance: CIPROFLOXACIN
  7. CLINDAMYCIN [Concomitant]
     Active Substance: CLINDAMYCIN
  8. CODEINE [Concomitant]
     Active Substance: CODEINE

REACTIONS (2)
  - Off label use [Unknown]
  - No adverse event [Unknown]
